FAERS Safety Report 14692246 (Version 4)
Quarter: 2018Q3

REPORT INFORMATION
  Report Type: Report from Study
  Country: None (occurrence: US)
  Receive Date: 20180329
  Receipt Date: 20180903
  Transmission Date: 20181010
  Serious: Yes (Other)
  Sender: FDA-Public Use
  Company Number: US-ABBVIE-17K-163-2140912-00

PATIENT
  Age: 65 Year
  Sex: Female
  Weight: 52.21 kg

DRUGS (6)
  1. HUMIRA [Suspect]
     Active Substance: ADALIMUMAB
     Route: 058
     Dates: start: 2018
  2. HUMIRA [Suspect]
     Active Substance: ADALIMUMAB
     Route: 058
     Dates: start: 20171019, end: 201803
  3. HUMIRA [Suspect]
     Active Substance: ADALIMUMAB
     Indication: PSORIATIC ARTHROPATHY
     Route: 058
     Dates: start: 2017, end: 2017
  4. PREDNISONE. [Concomitant]
     Active Substance: PREDNISONE
     Indication: PSORIATIC ARTHROPATHY
  5. HYDROCHLOROTHIAZIDE. [Concomitant]
     Active Substance: HYDROCHLOROTHIAZIDE
     Indication: RENAL LITHIASIS PROPHYLAXIS
  6. CRESTOR [Concomitant]
     Active Substance: ROSUVASTATIN CALCIUM
     Indication: BLOOD CHOLESTEROL INCREASED

REACTIONS (10)
  - Drug ineffective [Not Recovered/Not Resolved]
  - Arthralgia [Recovering/Resolving]
  - Injection site urticaria [Recovered/Resolved]
  - Peripheral swelling [Unknown]
  - Gait inability [Recovered/Resolved]
  - Injection site pain [Recovered/Resolved]
  - Joint stiffness [Recovering/Resolving]
  - Psoriatic arthropathy [Recovering/Resolving]
  - Psoriasis [Unknown]
  - Arthralgia [Unknown]

NARRATIVE: CASE EVENT DATE: 2017
